FAERS Safety Report 13041547 (Version 1)
Quarter: 2016Q4

REPORT INFORMATION
  Report Type: Spontaneous
  Country: US (occurrence: US)
  Receive Date: 20161219
  Receipt Date: 20161219
  Transmission Date: 20170207
  Serious: No
  Sender: FDA-Public Use
  Company Number: US-ROCHE-1258475

PATIENT
  Sex: Male

DRUGS (1)
  1. ZELBORAF [Suspect]
     Active Substance: VEMURAFENIB
     Indication: METASTASES TO CENTRAL NERVOUS SYSTEM
     Dosage: FOUR TABS IN AM AND FOUR TABS IN PM
     Route: 048

REACTIONS (1)
  - Drug ineffective [Unknown]
